FAERS Safety Report 7150515-0 (Version None)
Quarter: 2010Q4

REPORT INFORMATION
  Report Type: 
  Country: None (occurrence: None)
  Receive Date: 20101124
  Receipt Date: 20101118
  Transmission Date: 20110411
  Serious: Yes (Death, Hospitalization)
  Sender: FDA-Public Use
  Company Number: 109057

PATIENT
  Age: 74 Year
  Sex: Female
  Weight: 57 kg

DRUGS (1)
  1. ADRIAMYCIN PFS [Suspect]
     Indication: BREAST CANCER
     Dosage: 77MG
     Dates: start: 20100730

REACTIONS (5)
  - ERUCTATION [None]
  - HAEMORRHAGE [None]
  - NECROSIS [None]
  - NEUTROPENIC COLITIS [None]
  - NEUTROPENIC SEPSIS [None]
